FAERS Safety Report 17305057 (Version 3)
Quarter: 2020Q4

REPORT INFORMATION
  Report Type: Spontaneous
  Country: US (occurrence: US)
  Receive Date: 20200122
  Receipt Date: 20201229
  Transmission Date: 20210113
  Serious: Yes (Other)
  Sender: FDA-Public Use
  Company Number: NVSC2020US010537

PATIENT
  Sex: Female

DRUGS (1)
  1. KISQALI [Suspect]
     Active Substance: RIBOCICLIB
     Indication: BREAST CANCER
     Dosage: 600 MG, QD
     Route: 065
     Dates: start: 20200114

REACTIONS (8)
  - Neuropathy peripheral [Unknown]
  - Pain [Unknown]
  - Alopecia [Unknown]
  - Mental impairment [Unknown]
  - Pain in extremity [Unknown]
  - Arthralgia [Unknown]
  - Hyperhidrosis [Unknown]
  - Swelling [Unknown]
